FAERS Safety Report 8543575-3 (Version None)
Quarter: 2012Q2

REPORT INFORMATION
  Report Type: 
  Country: None (occurrence: None)
  Receive Date: 20120412
  Receipt Date: 20090304
  Transmission Date: 20120825
  Serious: Yes (Other)
  Sender: FDA-Public Use
  Company Number: PHEH2007US05535

PATIENT
  Age: 59 Year
  Sex: Male

DRUGS (7)
  1. AREDIA [Suspect]
  2. FOSAMAX [Suspect]
  3. CASODEX [Concomitant]
  4. PREDNISONE TAB [Concomitant]
  5. LUPRON [Concomitant]
  6. ZOMETA [Suspect]
  7. TAXOTERE [Concomitant]

REACTIONS (7)
  - LOOSE TOOTH [None]
  - OSTEONECROSIS [None]
  - INFECTION [None]
  - PAIN [None]
  - ANXIETY [None]
  - INJURY [None]
  - BONE DISORDER [None]
